FAERS Safety Report 4761207-7 (Version None)
Quarter: 2005Q3

REPORT INFORMATION
  Report Type: 
  Country: None (occurrence: None)
  Receive Date: 20050901
  Receipt Date: 20050901
  Transmission Date: 20060218
  Serious: Yes (Other)
  Sender: FDA-Public Use
  Company Number: None

PATIENT
  Sex: Female
  Weight: 107.9561 kg

DRUGS (4)
  1. VANCOMYCIN [Suspect]
     Indication: POSTOPERATIVE INFECTION
     Dosage: 1.2 GM, IV Q 12 H
     Route: 042
     Dates: start: 20050815, end: 20050830
  2. VANCOMYCIN [Suspect]
     Indication: WOUND INFECTION
     Dosage: 1.2 GM, IV Q 12 H
     Route: 042
     Dates: start: 20050815, end: 20050830
  3. AMIKACIN [Suspect]
     Indication: POSTOPERATIVE INFECTION
     Dosage: 500 MG IV Q 12 H
     Route: 042
     Dates: start: 20050815, end: 20050830
  4. AMIKACIN [Suspect]
     Indication: WOUND INFECTION
     Dosage: 500 MG IV Q 12 H
     Route: 042
     Dates: start: 20050815, end: 20050830

REACTIONS (3)
  - DIZZINESS [None]
  - HEADACHE [None]
  - TINNITUS [None]
